FAERS Safety Report 4630874-0 (Version None)
Quarter: 2005Q2

REPORT INFORMATION
  Report Type: 
  Country: None (occurrence: None)
  Receive Date: 20050404
  Receipt Date: 20050404
  Transmission Date: 20051028
  Serious: No
  Sender: FDA-Public Use
  Company Number: None

PATIENT
  Sex: Female
  Weight: 151.3 kg

DRUGS (1)
  1. DOCETAXEL [Suspect]
     Indication: ENDOMETRIAL CANCER
     Dosage: 36 MG/M2 IV OVER 1 HOUR ON DAYS 1, 8 AND 15 EVERY 28 DAYS
     Route: 042
     Dates: start: 20041230

REACTIONS (18)
  - ABDOMINAL DISTENSION [None]
  - ABSCESS INTESTINAL [None]
  - ACUTE RESPIRATORY DISTRESS SYNDROME [None]
  - ASPIRATION [None]
  - BLOOD PRESSURE ABNORMAL [None]
  - CONSTIPATION [None]
  - DYSPNOEA [None]
  - GASTROINTESTINAL NECROSIS [None]
  - HYPOXIA [None]
  - INSOMNIA [None]
  - INTESTINAL OBSTRUCTION [None]
  - INTESTINAL PERFORATION [None]
  - NAUSEA [None]
  - PNEUMOMEDIASTINUM [None]
  - PNEUMONIA [None]
  - SEPSIS [None]
  - STAPHYLOCOCCAL INFECTION [None]
  - VOMITING [None]
